FAERS Safety Report 8577573-0 (Version None)
Quarter: 2012Q3

REPORT INFORMATION
  Report Type: 
  Country: None (occurrence: None)
  Receive Date: 20120807
  Receipt Date: 20120730
  Transmission Date: 20120928
  Serious: Yes (Hospitalization)
  Sender: FDA-Public Use
  Company Number: CN-BAYER-2012-076982

PATIENT
  Age: 60 Year
  Sex: Male

DRUGS (1)
  1. NEXAVAR [Suspect]
     Indication: PROPHYLAXIS
     Dosage: 0.2 G, BID
     Route: 048
     Dates: start: 20110601

REACTIONS (3)
  - CHROMATURIA [None]
  - ASTHENIA [None]
  - OCULAR ICTERUS [None]
